FAERS Safety Report 11564322 (Version 1)
Quarter: 2015Q3

REPORT INFORMATION
  Report Type: Spontaneous
  Country: US (occurrence: US)
  Receive Date: 20150916
  Receipt Date: 20150916
  Transmission Date: 20151125
  Serious: No
  Sender: FDA-Public Use
  Company Number: US-ELI_LILLY_AND_COMPANY-US200903002761

PATIENT
  Age: 58 Year
  Sex: Female

DRUGS (6)
  1. Q10 [Concomitant]
  2. VITAMINS [Concomitant]
     Active Substance: VITAMINS
  3. FORTEO [Suspect]
     Active Substance: TERIPARATIDE
     Dosage: 20 UG, DAILY (1/D)
     Dates: start: 200811
  4. FORTEO [Suspect]
     Active Substance: TERIPARATIDE
     Dosage: 20 UG, DAILY (1/D)
     Dates: start: 20090310
  5. WATER PILLS [Concomitant]
     Active Substance: UNSPECIFIED INGREDIENT
  6. LAXATIVES [Concomitant]
     Active Substance: UNSPECIFIED INGREDIENT

REACTIONS (4)
  - Joint swelling [Not Recovered/Not Resolved]
  - Chest pain [Recovered/Resolved]
  - Urine flow decreased [Not Recovered/Not Resolved]
  - Back pain [Recovered/Resolved]

NARRATIVE: CASE EVENT DATE: 200902
